FAERS Safety Report 4893140-4 (Version None)
Quarter: 2005Q4

REPORT INFORMATION
  Report Type: 
  Country: None (occurrence: None)
  Receive Date: 20051223
  Receipt Date: 20050920
  Transmission Date: 20060501
  Serious: Yes (Other)
  Sender: FDA-Public Use
  Company Number: PHEH2005US10235

PATIENT
  Age: 29 Year
  Sex: Male
  Weight: 88 kg

DRUGS (3)
  1. CLOZARIL [Suspect]
     Indication: SCHIZOPHRENIA
     Dosage: 250 MG, QD; 150 MG, BID  : ORAL
     Route: 048
     Dates: end: 19990201
  2. CLOZARIL [Suspect]
     Indication: SCHIZOPHRENIA
     Dosage: 250 MG, QD; 150 MG, BID  : ORAL
     Route: 048
     Dates: start: 19990201
  3. BUSPIRONE HCL [Suspect]
     Indication: ANXIETY
     Dosage: 5 MG, BID, ORAL
     Route: 048

REACTIONS (6)
  - BLOOD GLUCOSE INCREASED [None]
  - BLOOD PRESSURE INCREASED [None]
  - BLOOD TRIGLYCERIDES INCREASED [None]
  - CHEST PAIN [None]
  - DIZZINESS [None]
  - TACHYCARDIA [None]
